FAERS Safety Report 5112920-3 (Version None)
Quarter: 2006Q3

REPORT INFORMATION
  Report Type: 
  Country: None (occurrence: None)
  Receive Date: 20060921
  Receipt Date: 20060921
  Transmission Date: 20061208
  Serious: Yes (Hospitalization)
  Sender: FDA-Public Use
  Company Number: None

PATIENT
  Sex: Male
  Weight: 91 kg

DRUGS (1)
  1. HEPARIN [Suspect]
     Dates: start: 20060808, end: 20060815

REACTIONS (13)
  - CARDIOGENIC SHOCK [None]
  - CARDIOMYOPATHY [None]
  - ESCHERICHIA INFECTION [None]
  - HAEMATOCRIT DECREASED [None]
  - HAEMOGLOBIN DECREASED [None]
  - HEPARIN-INDUCED THROMBOCYTOPENIA [None]
  - ISCHAEMIC HEPATITIS [None]
  - MYOCARDIAL INFARCTION [None]
  - PNEUMONIA STAPHYLOCOCCAL [None]
  - PYREXIA [None]
  - RENAL FAILURE ACUTE [None]
  - RENAL TUBULAR NECROSIS [None]
  - URINARY TRACT INFECTION [None]
